FAERS Safety Report 12434737 (Version 1)
Quarter: 2016Q2

REPORT INFORMATION
  Report Type: Spontaneous
  Country: DK (occurrence: DK)
  Receive Date: 20160603
  Receipt Date: 20160603
  Transmission Date: 20160815
  Serious: Yes (Death)
  Sender: FDA-Public Use
  Company Number: PHHY2016DK072694

PATIENT
  Age: 97 Year
  Sex: Female
  Weight: 70 kg

DRUGS (3)
  1. ELTROXIN [Concomitant]
     Active Substance: LEVOTHYROXINE
     Indication: MYXOEDEMA
     Route: 065
     Dates: start: 20110511
  2. DICILLIN [Suspect]
     Active Substance: DICLOXACILLIN SODIUM
     Indication: WOUND INFECTION
     Dosage: 1000 MG, TID (STYRKE: 500 MG)
     Route: 048
     Dates: start: 20160509, end: 20160516
  3. PANODIL [Concomitant]
     Active Substance: ACETAMINOPHEN
     Indication: PAIN
     Route: 065
     Dates: start: 20140527

REACTIONS (7)
  - Oropharyngeal pain [Fatal]
  - Pharyngeal ulceration [Fatal]
  - Tongue ulceration [Fatal]
  - Glossodynia [Fatal]
  - Pharyngeal oedema [Fatal]
  - Swollen tongue [Fatal]
  - Dehydration [Fatal]

NARRATIVE: CASE EVENT DATE: 20160516
